FAERS Safety Report 20958321 (Version 2)
Quarter: 2022Q2

REPORT INFORMATION
  Report Type: Spontaneous
  Country: ES (occurrence: ES)
  Receive Date: 20220614
  Receipt Date: 20220617
  Transmission Date: 20220720
  Serious: Yes (Hospitalization, Other)
  Sender: FDA-Public Use
  Company Number: None

PATIENT
  Age: 2 Year
  Sex: Male
  Weight: 13 kg

DRUGS (2)
  1. AZITHROMYCIN [Suspect]
     Active Substance: AZITHROMYCIN
     Indication: Pharyngitis
     Dosage: 3 ML, 1X/DAY (3ML / 3 DOSES)
     Route: 048
     Dates: start: 20220527, end: 20220529
  2. IBUPROFENO CINFA [Concomitant]
     Indication: Pyrexia
     Dosage: UNK

REACTIONS (6)
  - Aggression [Recovering/Resolving]
  - Irritability [Recovering/Resolving]
  - Rash [Recovered/Resolved]
  - Psychiatric symptom [Recovering/Resolving]
  - Depersonalisation/derealisation disorder [Recovering/Resolving]
  - Off label use [Unknown]

NARRATIVE: CASE EVENT DATE: 20220527
